FAERS Safety Report 10837695 (Version 1)
Quarter: 2015Q1

REPORT INFORMATION
  Report Type: Spontaneous
  Country: US (occurrence: None)
  Receive Date: 20150218
  Receipt Date: 20150218
  Transmission Date: 20150721
  Serious: No
  Sender: FDA-Public Use
  Company Number: HA15-029-AE

PATIENT
  Sex: Female
  Weight: 64.41 kg

DRUGS (11)
  1. PRILOSEC (OMEPRAZOLE) [Concomitant]
     Active Substance: OMEPRAZOLE MAGNESIUM
  2. MAGNESIUM GLUCONATE [Concomitant]
     Active Substance: MAGNESIUM GLUCONATE
  3. VORICONAZOLE (VFEND) [Concomitant]
  4. KLONOPIN [Concomitant]
     Active Substance: CLONAZEPAM
  5. MULTIPLE VITAMINS-MINERALS (CENTRUM SILVER) [Concomitant]
  6. SMZ / TMP [Suspect]
     Active Substance: SULFAMETHOXAZOLE\TRIMETHOPRIM
     Indication: BRONCHIECTASIS
     Route: 048
     Dates: start: 2014
  7. AMLODIPINE (NORVASC) [Concomitant]
  8. CALCIUM CARBONATE (CALCIUM) [Concomitant]
  9. PAROXETINE (PAXIL) [Concomitant]
  10. POTASSIUM GLUCONATE [Concomitant]
     Active Substance: POTASSIUM GLUCONATE
  11. PSEUDOEPHEDRINE (SUDAFED) [Concomitant]

REACTIONS (6)
  - Condition aggravated [None]
  - Nausea [None]
  - Lung infiltration [None]
  - Interstitial lung disease [None]
  - Aspergillus infection [None]
  - Asthenia [None]

NARRATIVE: CASE EVENT DATE: 2014
